FAERS Safety Report 19483057 (Version 1)
Quarter: 2021Q3

REPORT INFORMATION
  Report Type: Spontaneous
  Country: DE (occurrence: DE)
  Receive Date: 20210701
  Receipt Date: 20210701
  Transmission Date: 20211014
  Serious: Yes (Congenital Anomaly, Other)
  Sender: FDA-Public Use
  Company Number: DE-TORRENT-00020530

PATIENT
  Sex: Female
  Weight: 2 kg

DRUGS (2)
  1. NEBIVOLOL. [Suspect]
     Active Substance: NEBIVOLOL
     Indication: HYPERTENSION
     Dosage: 5 [MG/D ]/ INITIAL 2.5MG DAILY, DOSAGE INCREASED TO 5MG DAILY FROM WEEK 35+3
     Route: 064
     Dates: start: 20200224, end: 20201117
  2. ASPIRIN. [Concomitant]
     Active Substance: ASPIRIN
     Indication: PROPHYLAXIS
     Dosage: 100 [MG/D ]
     Route: 064

REACTIONS (3)
  - Foetal exposure during pregnancy [Unknown]
  - Ureteric stenosis [Not Recovered/Not Resolved]
  - Congenital hydronephrosis [Not Recovered/Not Resolved]
